FAERS Safety Report 22015754 (Version 1)
Quarter: 2023Q1

REPORT INFORMATION
  Report Type: Spontaneous
  Country: GB (occurrence: GB)
  Receive Date: 20230221
  Receipt Date: 20230221
  Transmission Date: 20230418
  Serious: Yes (Other)
  Sender: FDA-Public Use
  Company Number: GB-Clinigen Group PLC/ Clinigen Healthcare Ltd-GB-CLGN-23-00065

PATIENT
  Age: 33 Year
  Sex: Female
  Weight: 53.7 kg

DRUGS (4)
  1. PROLEUKIN [Suspect]
     Active Substance: ALDESLEUKIN
     Indication: Liver transplant
     Route: 058
     Dates: start: 20180213
  2. PROLEUKIN [Suspect]
     Active Substance: ALDESLEUKIN
     Indication: Supportive care
     Dosage: AT WEEK 4
     Dates: end: 20180605
  3. TACROLIMUS [Concomitant]
     Active Substance: TACROLIMUS
     Indication: Product used for unknown indication
     Dates: start: 20150713
  4. CALCIUM CARBONATE\CHOLECALCIFEROL [Concomitant]
     Active Substance: CALCIUM CARBONATE\CHOLECALCIFEROL
     Indication: Product used for unknown indication
     Dates: start: 20180227

REACTIONS (8)
  - Liver transplant rejection [Unknown]
  - Vascular pseudoaneurysm [Recovered/Resolved]
  - Injection site reaction [Recovered/Resolved]
  - Influenza like illness [Recovered/Resolved]
  - Eosinophilia [Recovered/Resolved]
  - Pruritus [Recovered/Resolved]
  - Drug ineffective for unapproved indication [Unknown]
  - Off label use [Unknown]

NARRATIVE: CASE EVENT DATE: 20180213
